FAERS Safety Report 5079624-7 (Version None)
Quarter: 2006Q3

REPORT INFORMATION
  Report Type: 
  Country: None (occurrence: None)
  Receive Date: 20060814
  Receipt Date: 20060803
  Transmission Date: 20061208
  Serious: Yes (Hospitalization)
  Sender: FDA-Public Use
  Company Number: SE-BOEHRINGER INGELHEIM PHARMACEUTICALS, INC.-2006-SW-00329SW

PATIENT
  Sex: Male

DRUGS (5)
  1. SIFROL TAB. 0.18 MG [Suspect]
     Indication: RESTLESS LEGS SYNDROME
     Dates: start: 20060602, end: 20060606
  2. APROVEL [Concomitant]
  3. WARAN [Concomitant]
  4. LANACRIST [Concomitant]
  5. MIRTAZAPINE [Concomitant]
     Indication: RESTLESS LEGS SYNDROME

REACTIONS (6)
  - CYANOSIS [None]
  - HAEMATOMA [None]
  - MALAISE [None]
  - PAIN IN EXTREMITY [None]
  - SKIN DISCOLOURATION [None]
  - SWELLING [None]
